FAERS Safety Report 9973553 (Version 2)
Quarter: 2014Q1

REPORT INFORMATION
  Report Type: Spontaneous
  Country: FR (occurrence: FR)
  Receive Date: 20140306
  Receipt Date: 20140306
  Transmission Date: 20141002
  Serious: Yes (Hospitalization, Other)
  Sender: FDA-Public Use
  Company Number: FR-BAXTER-2014BAX001508

PATIENT
  Age: 1 Year
  Sex: Male
  Weight: 9.4 kg

DRUGS (7)
  1. ADVATE [Suspect]
     Indication: INTRA-ABDOMINAL HAEMATOMA
     Dosage: ON DEMAND
     Route: 042
     Dates: start: 20130615, end: 20130615
  2. ADVATE 500 UI POUDRE ET SOLVANT POUR SOLUTION INJECTABLE [Suspect]
     Indication: HAEMATOMA
     Dosage: ON DEMAND
     Route: 042
     Dates: start: 20130805, end: 20130805
  3. ADVATE 500 UI POUDRE ET SOLVANT POUR SOLUTION INJECTABLE [Suspect]
     Indication: FACTOR VIII DEFICIENCY
     Dosage: ON DEMAND
     Route: 042
     Dates: start: 20130816, end: 20130816
  4. ADVATE 500 UI POUDRE ET SOLVANT POUR SOLUTION INJECTABLE [Suspect]
     Indication: HEAD INJURY
     Dosage: ON DEMAND
     Route: 042
     Dates: start: 20131127, end: 20131127
  5. ADVATE 500 UI POUDRE ET SOLVANT POUR SOLUTION INJECTABLE [Suspect]
     Dosage: ON DEMAND
     Route: 042
     Dates: start: 20131230, end: 20131230
  6. ADVATE 500 UI POUDRE ET SOLVANT POUR SOLUTION INJECTABLE [Suspect]
     Dosage: ON DEMAND
     Route: 042
     Dates: start: 20131231, end: 20131231
  7. ADVATE [Suspect]
     Route: 065
     Dates: start: 20130524

REACTIONS (3)
  - Factor VIII inhibition [Not Recovered/Not Resolved]
  - Head injury [Unknown]
  - Haematoma [Unknown]
